FAERS Safety Report 4917379-4 (Version None)
Quarter: 2006Q1

REPORT INFORMATION
  Report Type: 
  Country: None (occurrence: None)
  Receive Date: 20060221
  Receipt Date: 20060217
  Transmission Date: 20060701
  Serious: Yes (Hospitalization)
  Sender: FDA-Public Use
  Company Number: US-GLAXOSMITHKLINE-A0594173A

PATIENT
  Age: 25 Year
  Sex: Female

DRUGS (1)
  1. ZOFRAN [Suspect]
     Indication: NAUSEA
     Dosage: 4MG AS REQUIRED
     Route: 048

REACTIONS (2)
  - DEHYDRATION [None]
  - DRUG EXPOSURE DURING PREGNANCY [None]
